FAERS Safety Report 5658126-0 (Version None)
Quarter: 2008Q1

REPORT INFORMATION
  Report Type: 
  Country: None (occurrence: None)
  Receive Date: 20080310
  Receipt Date: 20070105
  Transmission Date: 20080703
  Serious: Yes (Other)
  Sender: FDA-Public Use
  Company Number: US-BAYER-200710064BCC

PATIENT
  Sex: Female

DRUGS (4)
  1. MIDOL [Suspect]
     Indication: MUSCLE SPASMS
     Dosage: UNIT DOSE: 220 MG
     Route: 048
     Dates: start: 20070105
  2. IBUPROFEN [Suspect]
     Indication: MUSCLE SPASMS
     Route: 048
     Dates: start: 20070105
  3. TYLENOL [Suspect]
     Indication: MUSCLE SPASMS
     Route: 048
     Dates: start: 20070105
  4. REGULAR STRENGTH PAIN RELIEVER [Suspect]
     Indication: MUSCLE SPASMS
     Route: 048
     Dates: start: 20070105

REACTIONS (1)
  - DYSPNOEA [None]
